FAERS Safety Report 11341145 (Version 1)
Quarter: 2015Q3

REPORT INFORMATION
  Report Type: Spontaneous
  Country: US (occurrence: None)
  Receive Date: 20150629
  Receipt Date: 20150629
  Transmission Date: 20151125
  Serious: No
  Sender: FDA-Public Use
  Company Number: A-NJ2015-111554

PATIENT
  Age: 76 Year
  Sex: Female

DRUGS (12)
  1. LANTUS [Concomitant]
     Active Substance: INSULIN GLARGINE
  2. METOPROLOL (METOPROLOL FUMARATE) [Concomitant]
  3. AMLODIPINE BENAZEPRIL (AMLODIPINE BESILATE, BENAZEPRIL HYDROCHLORIDE) [Concomitant]
  4. HYDRALAZINE (HYDRALAZINE HYDROCHLORIDE) [Concomitant]
  5. ASPIRIN (ACETYLSALICYLIC ACID) [Concomitant]
     Active Substance: ASPIRIN
  6. MAGNESIUM (MAGNESIUM SULFATE) [Concomitant]
  7. OPSUMIT [Suspect]
     Active Substance: MACITENTAN
     Indication: COR PULMONALE CHRONIC
     Route: 048
     Dates: start: 20150101
  8. DIAZEPAM (DIAZEPAM) [Concomitant]
     Active Substance: DIAZEPAM
  9. IRON (IRON) [Concomitant]
     Active Substance: IRON
  10. NOVOLOG [Concomitant]
     Active Substance: INSULIN ASPART
  11. GABAPENTIN (GABAPENTIN) [Concomitant]
     Active Substance: GABAPENTIN
  12. CRESTOR [Concomitant]
     Active Substance: ROSUVASTATIN CALCIUM

REACTIONS (2)
  - Ligament sprain [None]
  - Oedema peripheral [None]

NARRATIVE: CASE EVENT DATE: 20150108
